FAERS Safety Report 20843014 (Version 2)
Quarter: 2022Q2

REPORT INFORMATION
  Report Type: Spontaneous
  Country: US (occurrence: US)
  Receive Date: 20220518
  Receipt Date: 20220520
  Transmission Date: 20220721
  Serious: No
  Sender: FDA-Public Use
  Company Number: US-BRISTOL-MYERS SQUIBB COMPANY-2022-036670

PATIENT
  Sex: Male

DRUGS (7)
  1. REVLIMID [Suspect]
     Active Substance: LENALIDOMIDE
     Indication: Granuloma
     Dosage: TWO WEEKS ON, TWO WEEKS OFF, JUST FOURTEEN DAYS
     Route: 048
  2. losartan (Cozaar) [Concomitant]
     Indication: Product used for unknown indication
  3. METOPROLOL SUCCINATE [Concomitant]
     Active Substance: METOPROLOL SUCCINATE
     Indication: Product used for unknown indication
  4. Rosuvastatin crestor [Concomitant]
     Indication: Blood cholesterol
  5. Tamsulos (Flomax) [Concomitant]
     Route: 048
  6. BRILINTA [Concomitant]
     Active Substance: TICAGRELOR
     Indication: Stent placement
  7. LEVOTHYROXINE [Concomitant]
     Active Substance: LEVOTHYROXINE
     Indication: Thyroid disorder

REACTIONS (3)
  - Taste disorder [Unknown]
  - Intentional product use issue [Unknown]
  - Skin disorder [Unknown]
